FAERS Safety Report 19965538 (Version 1)
Quarter: 2021Q4

REPORT INFORMATION
  Report Type: Spontaneous
  Country: US (occurrence: US)
  Receive Date: 20211018
  Receipt Date: 20211018
  Transmission Date: 20220303
  Serious: Yes (Other)
  Sender: FDA-Public Use
  Company Number: US-ELI_LILLY_AND_COMPANY-US202110003438

PATIENT
  Sex: Female

DRUGS (2)
  1. TRULICITY [Suspect]
     Active Substance: DULAGLUTIDE
     Indication: Diabetes mellitus
     Dosage: 1.5 MG, UNKNOWN
     Route: 058
     Dates: start: 2017
  2. TRULICITY [Suspect]
     Active Substance: DULAGLUTIDE
     Dosage: 3 MG (TWO 1.5MG DOSE), UNKNOWN
     Route: 058
     Dates: start: 202108

REACTIONS (11)
  - Dyspnoea [Unknown]
  - Retinopathy [Unknown]
  - Cardiac disorder [Unknown]
  - Upper limb fracture [Unknown]
  - Foot fracture [Unknown]
  - Gait disturbance [Unknown]
  - Gout [Unknown]
  - Arthritis [Unknown]
  - Arthralgia [Unknown]
  - Asthenia [Unknown]
  - Fatigue [Unknown]
